FAERS Safety Report 8511642-6 (Version None)
Quarter: 2012Q3

REPORT INFORMATION
  Report Type: 
  Country: None (occurrence: None)
  Receive Date: 20120710
  Receipt Date: 20120710
  Transmission Date: 20120928
  Serious: Yes (Hospitalization)
  Sender: FDA-Public Use
  Company Number: None

PATIENT
  Sex: Male
  Weight: 68.9 kg

DRUGS (2)
  1. TAXOTERE [Suspect]
     Dosage: 135 MG
  2. CISPLATIN [Suspect]
     Dosage: 135 MG

REACTIONS (1)
  - RENAL FAILURE ACUTE [None]
